FAERS Safety Report 8596878-0 (Version None)
Quarter: 2012Q3

REPORT INFORMATION
  Report Type: 
  Country: None (occurrence: None)
  Receive Date: 20120815
  Receipt Date: 20120808
  Transmission Date: 20120928
  Serious: Yes (Death)
  Sender: FDA-Public Use
  Company Number: FR-BAXTER-2012BAX014316

PATIENT

DRUGS (6)
  1. VINCRISTINE [Suspect]
     Route: 042
  2. PREDNISONE TAB [Suspect]
     Route: 048
  3. CYCLOPHOSPHAMIDE [Suspect]
  4. CYCLOPHOSPHAMIDE [Suspect]
     Dosage: 3 G/M^2
     Route: 042
  5. DOXORUBICIN HYDROCHLORIDE [Suspect]
     Route: 042
  6. CYCLOPHOSPHAMIDE [Suspect]
     Route: 042

REACTIONS (1)
  - SEPTIC SHOCK [None]
